FAERS Safety Report 12502905 (Version 2)
Quarter: 2016Q3

REPORT INFORMATION
  Report Type: Spontaneous
  Country: NL (occurrence: NL)
  Receive Date: 20160628
  Receipt Date: 20160726
  Transmission Date: 20161109
  Serious: Yes (Hospitalization)
  Sender: FDA-Public Use
  Company Number: NL-009507513-1606NLD011256

PATIENT
  Age: 76 Year
  Sex: Male

DRUGS (9)
  1. VORICONAZOLE. [Interacting]
     Active Substance: VORICONAZOLE
     Indication: BRONCHOPULMONARY ASPERGILLOSIS
     Dosage: 200 MG, BID (2 TIMES A DAY 1 UNIT(S))
     Route: 048
     Dates: start: 20160520, end: 20160607
  2. ASPIRIN. [Concomitant]
     Active Substance: ASPIRIN
     Dosage: 80 MG, QD (1 TIME A DAY 1)
     Route: 048
  3. ALBUTEROL SULFATE. [Concomitant]
     Active Substance: ALBUTEROL SULFATE
     Dosage: 100 MICROGRAM, IF NEEDED 4-6 TIMES A DAY 1 DOSE
     Route: 055
  4. BECLOMETHASONE DIPROPIONATE [Concomitant]
     Active Substance: BECLOMETHASONE DIPROPIONATE
     Dosage: 2 DF, BID (2 TIMES A DAY 2 UNIT(S))
     Route: 055
  5. SIMVASTATIN. [Suspect]
     Active Substance: SIMVASTATIN
     Indication: HYPERCHOLESTEROLAEMIA
     Dosage: 40 MG, QD, (1 TIME A DAY 1 UNIT(S))
     Route: 048
     Dates: start: 20160530
  6. MACROGOL HEXAL [Concomitant]
     Active Substance: ETHYLENE GLYCOL
     Dosage: 1 DF, QD (1 TIME A DAY 1)
     Route: 048
  7. TAMSULOSIN HYDROCHLORIDE. [Concomitant]
     Active Substance: TAMSULOSIN HYDROCHLORIDE
     Dosage: 0.4 MG, QD (1 TIME A DAY 1 UNIT)
     Route: 048
  8. NADROPARIN CALCIUM [Concomitant]
     Active Substance: NADROPARIN CALCIUM
     Dosage: 0.3 ML (1 TIME A DAY 1 UNIT AFTER DISCHARGED FROM THE HOSPITAL)
     Route: 058
  9. HYDROCHLOROTHIAZIDE. [Concomitant]
     Active Substance: HYDROCHLOROTHIAZIDE
     Dosage: 12.5 MG, QD (1 TIME A DAY 1 UNIT)
     Route: 048

REACTIONS (2)
  - Cholecystitis [Recovering/Resolving]
  - Drug interaction [Recovering/Resolving]

NARRATIVE: CASE EVENT DATE: 20160607
